FAERS Safety Report 19168486 (Version 1)
Quarter: 2021Q2

REPORT INFORMATION
  Report Type: Spontaneous
  Country: US (occurrence: US)
  Receive Date: 20210422
  Receipt Date: 20210422
  Transmission Date: 20210717
  Serious: Yes (Hospitalization)
  Sender: FDA-Public Use
  Company Number: US-ROCHE-2814494

PATIENT
  Age: 34 Year
  Sex: Female

DRUGS (2)
  1. OCREVUS [Suspect]
     Active Substance: OCRELIZUMAB
     Indication: MULTIPLE SCLEROSIS
     Dosage: HAS BEEN ON OCREVUS FOR 1.5 YEARS
     Route: 065
  2. COVID?19 VACCINE MRNA [Concomitant]
     Dates: start: 202102

REACTIONS (1)
  - COVID-19 [Unknown]
